FAERS Safety Report 6230002-4 (Version None)
Quarter: 2009Q2

REPORT INFORMATION
  Report Type: 
  Country: None (occurrence: None)
  Receive Date: 20090615
  Receipt Date: 20090608
  Transmission Date: 20091009
  Serious: Yes (Death)
  Sender: FDA-Public Use
  Company Number: US-CELGENEUS-163-21880-09050794

PATIENT
  Sex: Male

DRUGS (3)
  1. REVLIMID [Suspect]
     Indication: MULTIPLE MYELOMA
     Route: 048
     Dates: start: 20081201, end: 20090101
  2. REVLIMID [Suspect]
     Route: 048
     Dates: start: 20080101, end: 20081001
  3. REVLIMID [Suspect]
     Route: 048
     Dates: start: 20081001, end: 20081201

REACTIONS (1)
  - MULTIPLE MYELOMA [None]
